FAERS Safety Report 9630044 (Version 3)
Quarter: 2013Q4

REPORT INFORMATION
  Report Type: Spontaneous
  Country: JP (occurrence: JP)
  Receive Date: 20131017
  Receipt Date: 20131031
  Transmission Date: 20140711
  Serious: Yes (Hospitalization)
  Sender: FDA-Public Use
  Company Number: JP-PFIZER INC-2013296564

PATIENT
  Age: 87 Year
  Sex: Male

DRUGS (4)
  1. ANCARON [Suspect]
     Indication: CARDIAC FAILURE
     Dosage: UNK
     Route: 065
  2. ANCARON [Interacting]
     Indication: ATRIAL FIBRILLATION
  3. WARFARIN SODIUM [Interacting]
     Indication: CARDIAC FAILURE
     Dosage: UNK
     Route: 048
  4. WARFARIN SODIUM [Interacting]
     Indication: ATRIAL FIBRILLATION

REACTIONS (5)
  - Drug interaction [Recovered/Resolved]
  - Duodenal vascular ectasia [Recovered/Resolved]
  - Haematemesis [Recovered/Resolved]
  - Prothrombin time prolonged [Recovered/Resolved]
  - International normalised ratio increased [Recovered/Resolved]
